FAERS Safety Report 8970190 (Version 1)
Quarter: 2012Q4

REPORT INFORMATION
  Report Type: 
  Country: US (occurrence: US)
  Receive Date: 20121217
  Receipt Date: 20121217
  Transmission Date: 20130627
  Serious: Yes (Other)
  Sender: FDA-Public Use
  Company Number: US-PFIZER INC-2012316803

PATIENT
  Age: 3 Year
  Sex: Male
  Weight: 31.75 kg

DRUGS (1)
  1. DIMETAPP [Suspect]
     Indication: COUGH
     Dosage: half teaspoon, two times a day
     Dates: start: 20121208, end: 20121210

REACTIONS (2)
  - Blood pressure increased [Recovered/Resolved]
  - Drug ineffective [Unknown]
